FAERS Safety Report 21210081 (Version 7)
Quarter: 2024Q2

REPORT INFORMATION
  Report Type: Spontaneous
  Country: US (occurrence: US)
  Receive Date: 20220814
  Receipt Date: 20240412
  Transmission Date: 20240716
  Serious: No
  Sender: FDA-Public Use
  Company Number: US-SANOFI-01228324

PATIENT
  Age: 64 Year
  Sex: Female

DRUGS (3)
  1. DUPIXENT [Suspect]
     Active Substance: DUPILUMAB
     Indication: Dermatitis atopic
     Dosage: 300 MG, QOW
     Route: 058
     Dates: start: 20220729
  2. DUPIXENT [Suspect]
     Active Substance: DUPILUMAB
  3. OZEMPIC [Suspect]
     Active Substance: SEMAGLUTIDE
     Dosage: 0.25MG,QW

REACTIONS (8)
  - Injection site pain [Unknown]
  - Fatigue [Unknown]
  - Nausea [Unknown]
  - Dizziness [Unknown]
  - Tremor [Unknown]
  - Arthralgia [Unknown]
  - Wrong technique in device usage process [Unknown]
  - Headache [Unknown]

NARRATIVE: CASE EVENT DATE: 20220802
